FAERS Safety Report 4625847-8 (Version None)
Quarter: 2005Q1

REPORT INFORMATION
  Report Type: 
  Country: None (occurrence: None)
  Receive Date: 20050330
  Receipt Date: 20050301
  Transmission Date: 20050727
  Serious: Yes (Hospitalization)
  Sender: FDA-Public Use
  Company Number: 2005AP01510

PATIENT
  Age: 68 Year
  Sex: Female

DRUGS (2)
  1. OMEPRAZOLE [Suspect]
     Indication: REFLUX OESOPHAGITIS
     Dosage: 20 MG DAILY PO
     Route: 048
     Dates: start: 20040416, end: 20050218
  2. BLOPRESS [Suspect]
     Indication: REFLUX OESOPHAGITIS
     Dosage: 12 MG DAILY PO
     Route: 048
     Dates: start: 20041105, end: 20050218

REACTIONS (1)
  - INTERSTITIAL LUNG DISEASE [None]
